FAERS Safety Report 10196072 (Version 1)
Quarter: 2014Q2

REPORT INFORMATION
  Report Type: Spontaneous
  Country: US (occurrence: US)
  Receive Date: 20140527
  Receipt Date: 20140527
  Transmission Date: 20141212
  Serious: No
  Sender: FDA-Public Use
  Company Number: US-PFIZER INC-2014141369

PATIENT
  Age: 69 Year
  Sex: Female
  Weight: 89.34 kg

DRUGS (4)
  1. GABAPENTIN [Suspect]
     Dosage: UNK
  2. METOPROLOL [Concomitant]
     Dosage: 25 MG, 1X/DAY
  3. LISINOPRIL W/HYDROCHLOROTHIAZIDE [Concomitant]
     Dosage: 12.5/25 MG, UNK
  4. PAXIL [Concomitant]
     Dosage: 10 MG, 1X/DAY

REACTIONS (2)
  - Drug intolerance [Unknown]
  - Mood swings [Unknown]
